FAERS Safety Report 5339197-8 (Version None)
Quarter: 2007Q2

REPORT INFORMATION
  Report Type: 
  Country: None (occurrence: None)
  Receive Date: 20070330
  Receipt Date: 20060616
  Transmission Date: 20071010
  Serious: Yes (Hospitalization)
  Sender: FDA-Public Use
  Company Number: 2006EN000134

PATIENT
  Age: 15 Year
  Sex: Male
  Weight: 100 kg

DRUGS (2)
  1. ONCASPAR [Suspect]
     Indication: ACUTE LYMPHOCYTIC LEUKAEMIA
     Dosage: 5500 IU; IM
     Route: 030
     Dates: start: 20060101, end: 20060423
  2. PROTONIX [Concomitant]

REACTIONS (4)
  - INJECTION SITE REACTION [None]
  - INJECTION SITE SWELLING [None]
  - OEDEMA PERIPHERAL [None]
  - THROAT IRRITATION [None]
